FAERS Safety Report 22611308 (Version 1)
Quarter: 2023Q2

REPORT INFORMATION
  Report Type: Spontaneous
  Country: CN (occurrence: CN)
  Receive Date: 20230616
  Receipt Date: 20230616
  Transmission Date: 20230722
  Serious: Yes (Hospitalization, Other)
  Sender: FDA-Public Use
  Company Number: CN-002147023-NVSC2023CN135049

PATIENT
  Age: 54 Year
  Sex: Male
  Weight: 75 kg

DRUGS (2)
  1. TEGRETOL [Suspect]
     Active Substance: CARBAMAZEPINE
     Indication: Facial spasm
     Dosage: 0.2 G, QD
     Route: 048
     Dates: start: 20230515, end: 20230529
  2. TEGRETOL [Suspect]
     Active Substance: CARBAMAZEPINE
     Indication: Facial nerve disorder

REACTIONS (13)
  - Drug eruption [Recovering/Resolving]
  - Pruritus [Recovering/Resolving]
  - Macule [Recovering/Resolving]
  - Skin erosion [Recovering/Resolving]
  - Lip erythema [Recovering/Resolving]
  - Papule [Recovering/Resolving]
  - Effusion [Recovering/Resolving]
  - Petechiae [Recovering/Resolving]
  - Purpura [Recovering/Resolving]
  - Purulent discharge [Recovering/Resolving]
  - Scab [Recovering/Resolving]
  - Ocular hyperaemia [Recovering/Resolving]
  - Product use in unapproved indication [Unknown]

NARRATIVE: CASE EVENT DATE: 20230531
